FAERS Safety Report 5119068-2 (Version None)
Quarter: 2006Q3

REPORT INFORMATION
  Report Type: 
  Country: None (occurrence: None)
  Receive Date: 20060927
  Receipt Date: 20060918
  Transmission Date: 20061208
  Serious: Yes (Life-Threatening)
  Sender: FDA-Public Use
  Company Number: US-2006-027377

PATIENT
  Age: 57 Year
  Sex: Female
  Weight: 144 kg

DRUGS (11)
  1. ULTRAVIST 300 [Suspect]
     Indication: COMPUTERISED TOMOGRAM ABDOMEN
     Dosage: 150 ML, 1 DOSE, INTRAVENOUS
     Route: 042
     Dates: start: 20060918, end: 20060918
  2. BARIUM SULFATE [Concomitant]
  3. ALBUTEROL [Concomitant]
  4. NITROGLYCERIN [Concomitant]
  5. ONDANSETRON [Concomitant]
  6. NOVOLIN N [Concomitant]
  7. ^NAPERIDINE^ [Concomitant]
  8. SERTRALINE [Concomitant]
  9. CARISOPRODOL [Concomitant]
  10. ALPRAZOLAM [Concomitant]
  11. ZOSYN [Concomitant]

REACTIONS (3)
  - CARDIAC ARREST [None]
  - CONVULSION [None]
  - DYSPNOEA [None]
